FAERS Safety Report 7605957-3 (Version None)
Quarter: 2011Q3

REPORT INFORMATION
  Report Type: 
  Country: None (occurrence: None)
  Receive Date: 20110713
  Receipt Date: 20110629
  Transmission Date: 20111222
  Serious: Yes (Hospitalization)
  Sender: FDA-Public Use
  Company Number: PHHY2011US23428

PATIENT
  Age: 87 Year
  Sex: Female

DRUGS (3)
  1. EYE DROPS [Concomitant]
  2. DIOVAN [Suspect]
     Dosage: 160 MG, QD
  3. INSULIN [Concomitant]

REACTIONS (3)
  - BREAST PAIN [None]
  - MALAISE [None]
  - FEELING COLD [None]
